FAERS Safety Report 23316270 (Version 1)
Quarter: 2023Q4

REPORT INFORMATION
  Report Type: Spontaneous
  Country: US (occurrence: None)
  Receive Date: 20231219
  Receipt Date: 20231219
  Transmission Date: 20240110
  Serious: No
  Sender: FDA-Public Use
  Company Number: US-ROCHE-3437735

PATIENT
  Age: 35 Year
  Sex: Male

DRUGS (1)
  1. HEMLIBRA [Suspect]
     Active Substance: EMICIZUMAB-KXWH
     Indication: Factor VIII deficiency
     Dosage: //2021
     Route: 065
     Dates: start: 2020

REACTIONS (3)
  - Penile haemorrhage [Unknown]
  - Epistaxis [Unknown]
  - Haemarthrosis [Unknown]
